FAERS Safety Report 23113790 (Version 1)
Quarter: 2023Q4

REPORT INFORMATION
  Report Type: Report from Study
  Country: US (occurrence: US)
  Receive Date: 20231027
  Receipt Date: 20231027
  Transmission Date: 20240110
  Serious: Yes (Other)
  Sender: FDA-Public Use
  Company Number: US-UCBSA-2023004514

PATIENT
  Age: 74 Year
  Sex: Female

DRUGS (1)
  1. CERTOLIZUMAB PEGOL [Suspect]
     Active Substance: CERTOLIZUMAB PEGOL
     Indication: Rheumatoid arthritis
     Dosage: UNK
     Dates: start: 20220822, end: 2023

REACTIONS (3)
  - Rheumatoid arthritis [Not Recovered/Not Resolved]
  - Diarrhoea [Not Recovered/Not Resolved]
  - Drug ineffective [Unknown]

NARRATIVE: CASE EVENT DATE: 20230101
